FAERS Safety Report 5807320-4 (Version None)
Quarter: 2008Q3

REPORT INFORMATION
  Report Type: 
  Country: None (occurrence: None)
  Receive Date: 20080711
  Receipt Date: 20080702
  Transmission Date: 20090109
  Serious: Yes (Death)
  Sender: FDA-Public Use
  Company Number: JP-ABBOTT-08P-087-0460940-00

PATIENT
  Age: 81 Year
  Sex: Male

DRUGS (3)
  1. LEUPROLIDE ACETATE [Suspect]
     Indication: PROSTATE CANCER STAGE II
     Route: 058
     Dates: start: 20061003, end: 20061226
  2. BICALUTAMIDE [Concomitant]
     Indication: PROSTATE CANCER STAGE II
     Route: 048
     Dates: start: 20060919, end: 20070306
  3. RILMAZAFONE [Concomitant]
     Indication: INSOMNIA
     Route: 048
     Dates: start: 20070123, end: 20070307

REACTIONS (2)
  - ASPHYXIA [None]
  - ASPIRATION [None]
